FAERS Safety Report 7483819-2 (Version None)
Quarter: 2011Q2

REPORT INFORMATION
  Report Type: 
  Country: None (occurrence: None)
  Receive Date: 20110517
  Receipt Date: 20110113
  Transmission Date: 20111010
  Serious: Yes (Hospitalization, Other)
  Sender: FDA-Public Use
  Company Number: US-BAYER-201038341NA

PATIENT
  Age: 29 Year
  Sex: Female
  Weight: 81.633 kg

DRUGS (8)
  1. MULTI-VITAMIN [Concomitant]
     Indication: MINERAL SUPPLEMENTATION
  2. PRILOSEC [Concomitant]
     Indication: HYPERCHLORHYDRIA
     Dosage: 20 MG, UNK
  3. YASMIN [Suspect]
     Indication: CONTRACEPTION
     Dosage: UNK
     Dates: start: 20050601, end: 20080901
  4. ULTRAM [Concomitant]
     Indication: ANALGESIC THERAPY
     Route: 048
  5. ALBUTEROL [Concomitant]
     Indication: BRONCHOSPASM
     Dosage: UNK UNK, PRN
     Route: 048
  6. IBUPROFEN [Concomitant]
     Indication: PYREXIA
  7. MULTI-VITAMIN [Concomitant]
     Indication: VITAMIN SUPPLEMENTATION
     Route: 048
  8. IBUPROFEN [Concomitant]
     Indication: ANALGESIC THERAPY
     Dosage: UNK UNK, PRN
     Route: 048

REACTIONS (7)
  - GALLBLADDER DISORDER [None]
  - NAUSEA [None]
  - POST CHOLECYSTECTOMY SYNDROME [None]
  - CHEST DISCOMFORT [None]
  - CHOLECYSTITIS CHRONIC [None]
  - CHOLELITHIASIS [None]
  - GALLBLADDER PAIN [None]
